FAERS Safety Report 22785876 (Version 2)
Quarter: 2023Q4

REPORT INFORMATION
  Report Type: Report from Study
  Country: US (occurrence: US)
  Receive Date: 20230804
  Receipt Date: 20231021
  Transmission Date: 20240109
  Serious: Yes (Death, Hospitalization)
  Sender: FDA-Public Use
  Company Number: US-TEVA-2023-US-2912447

PATIENT
  Age: 61 Year
  Sex: Female
  Weight: 113.2 kg

DRUGS (30)
  1. FLUOROURACIL [Suspect]
     Active Substance: FLUOROURACIL
     Indication: Pancreatic carcinoma metastatic
     Dosage: 4454.4 MG DAY 1,3,15 AND 17 OF EACH 28 DAY CYCLE
     Route: 042
     Dates: start: 20221031
  2. FLUOROURACIL [Suspect]
     Active Substance: FLUOROURACIL
     Dosage: 3712 MG DAY 1, 3, 15 AND 17 OF EACH 28 DAY CYCLE
     Route: 042
     Dates: start: 20221031, end: 20230406
  3. LEUCOVORIN [Suspect]
     Active Substance: LEUCOVORIN\LEUCOVORIN CALCIUM
     Indication: Pancreatic carcinoma metastatic
     Dosage: 928 MG DAY 1 AND DAY 15 OF EACH 28 DAY CYCLE
     Route: 042
     Dates: start: 20221031, end: 20230404
  4. OXALIPLATIN [Suspect]
     Active Substance: OXALIPLATIN
     Indication: Pancreatic carcinoma metastatic
     Dosage: 116 MG DAY1 AND DAY 15 OF EACH 28 DAY CYCLE
     Route: 042
     Dates: start: 20221031, end: 20230404
  5. IRINOTECAN [Suspect]
     Active Substance: IRINOTECAN
     Indication: Pancreatic carcinoma metastatic
     Dosage: 278.4 MG DAY 1 AND DAY 15 OF EACH 28 DAY CYCLE
     Route: 042
     Dates: start: 20221031
  6. IRINOTECAN [Suspect]
     Active Substance: IRINOTECAN
     Dosage: 185.6 MG DAY 1 AND DAY 15 OF EACH 28 DAY CYCLE
     Route: 042
     Dates: start: 20221031, end: 20230404
  7. BUDIGALIMAB [Suspect]
     Active Substance: BUDIGALIMAB
     Indication: Pancreatic carcinoma metastatic
     Dosage: 500 MG DAY 3 OF EACH 28 DAY CYCLE, EVERY 4 WEEKS
     Route: 042
     Dates: start: 20221102, end: 20230309
  8. GILORALIMAB [Suspect]
     Active Substance: GILORALIMAB
     Indication: Pancreatic carcinoma metastatic
     Dosage: 30 MG DAY3 OF EACH 28 DAY CYCLE, EVERY 4 WEEKS
     Route: 042
     Dates: start: 20221102, end: 20230309
  9. EMLA [Concomitant]
     Active Substance: LIDOCAINE\PRILOCAINE
     Indication: Pain management
     Dosage: AS NECESSARY
     Route: 065
     Dates: start: 20221018
  10. Dulcolax [Concomitant]
     Indication: Constipation prophylaxis
     Dosage: 5 MILLIGRAM DAILY;
     Route: 065
     Dates: start: 202209
  11. IBUPROFEN [Concomitant]
     Active Substance: IBUPROFEN
     Indication: Back pain
     Dosage: AS NECESSARY
     Route: 065
  12. LANTUS [Concomitant]
     Active Substance: INSULIN GLARGINE
     Indication: Diabetes mellitus
     Dosage: 32 UNITS, EVERY EVENING
     Route: 065
     Dates: start: 202209
  13. LANTUS [Concomitant]
     Active Substance: INSULIN GLARGINE
     Route: 065
     Dates: start: 20230325
  14. ZOLOFT [Concomitant]
     Active Substance: SERTRALINE HYDROCHLORIDE
     Indication: Antidepressant therapy
     Dosage: 50 MILLIGRAM DAILY;
     Route: 065
     Dates: start: 20221003
  15. PROTONIX [Concomitant]
     Active Substance: PANTOPRAZOLE SODIUM
     Indication: Dyspepsia
     Dosage: 2 DAYS
     Route: 065
     Dates: start: 202209
  16. MELATONIN [Concomitant]
     Active Substance: MELATONIN
     Indication: Sleep disorder therapy
     Dosage: 3 MILLIGRAM DAILY;
     Route: 065
     Dates: start: 202209
  17. INSULIN NOS [Concomitant]
     Active Substance: INSULIN NOS
     Indication: Diabetes mellitus
     Dosage: 100 UNITS/ML IU AS NECESSARY
     Route: 065
     Dates: start: 202209
  18. HUMALOG JUNIOR KWIKPEN [Concomitant]
     Active Substance: INSULIN LISPRO
     Indication: Diabetes mellitus
     Dosage: 9 UNITS IU, 3 DAYS
     Route: 065
     Dates: start: 202209
  19. TUCKS [Concomitant]
     Indication: Haemorrhoids
     Dosage: MEDICATED COOLING PADS, 1 APPLICATION AS NECESSARY
     Route: 065
     Dates: start: 202210
  20. COMPAZINE [Concomitant]
     Active Substance: PROCHLORPERAZINE MALEATE
     Indication: Prophylaxis of nausea and vomiting
     Dosage: 40 MILLIGRAM DAILY;
     Route: 065
     Dates: start: 202210
  21. ZOFRAN [Concomitant]
     Active Substance: ONDANSETRON HYDROCHLORIDE
     Indication: Prophylaxis of nausea and vomiting
     Dosage: AS NECESSARY
     Route: 065
     Dates: start: 202210
  22. IMODIUM [Concomitant]
     Active Substance: LOPERAMIDE HYDROCHLORIDE
     Indication: Diarrhoea
     Dosage: 2 MG AS NECESSARY
     Route: 065
     Dates: start: 202210
  23. IMODIUM [Concomitant]
     Active Substance: LOPERAMIDE HYDROCHLORIDE
     Dosage: 2 MG AS NECESSARY
     Route: 065
     Dates: start: 20221102
  24. AMBIEN [Concomitant]
     Active Substance: ZOLPIDEM TARTRATE
     Indication: Insomnia
     Dosage: 5 MILLIGRAM DAILY;
     Route: 065
     Dates: start: 20221128
  25. ELIQUIS [Concomitant]
     Active Substance: APIXABAN
     Indication: Embolism
     Dosage: 10 MG, 2 DAYS
     Route: 065
     Dates: start: 20230106
  26. ACETAMINOPHEN [Concomitant]
     Active Substance: ACETAMINOPHEN
     Indication: Pain
     Dosage: 650 MG AS NECESSARY
     Route: 065
     Dates: start: 20230220
  27. NEURONTIN [Concomitant]
     Active Substance: GABAPENTIN
     Indication: Pain
     Dosage: 300 MILLIGRAM DAILY;
     Route: 065
     Dates: start: 20230118
  28. ROXICODONE [Concomitant]
     Active Substance: OXYCODONE HYDROCHLORIDE
     Indication: Pain
     Dosage: 5 MG, 2 DAYS
     Route: 065
     Dates: start: 20230118
  29. ATROPINE [Concomitant]
     Active Substance: ATROPINE
     Indication: Cholinergic syndrome
     Dosage: 0.4 MG, AS NECESSARY
     Route: 065
     Dates: start: 20230623
  30. OXYCODONE [Concomitant]
     Active Substance: OXYCODONE
     Indication: Pain
     Dosage: : 5 MG, 6/DAYS
     Route: 065
     Dates: start: 20230325

REACTIONS (4)
  - Disease progression [Fatal]
  - Muscular weakness [Not Recovered/Not Resolved]
  - Back pain [Recovered/Resolved]
  - Peripheral sensory neuropathy [Not Recovered/Not Resolved]

NARRATIVE: CASE EVENT DATE: 20221101
